FAERS Safety Report 4773538-5 (Version None)
Quarter: 2005Q3

REPORT INFORMATION
  Report Type: 
  Country: None (occurrence: None)
  Receive Date: 20050920
  Receipt Date: 20040927
  Transmission Date: 20060218
  Serious: No
  Sender: FDA-Public Use
  Company Number: US-BRISTOL-MYERS SQUIBB COMPANY-12714010

PATIENT
  Age: 42 Year
  Sex: Female
  Weight: 57 kg

DRUGS (2)
  1. BUSPAR [Suspect]
     Indication: PANIC ATTACK
     Dosage: INITIATED THERAPY 5 TO 6 YEARS AGO
     Route: 048
     Dates: start: 20010101
  2. ADVIL [Concomitant]

REACTIONS (4)
  - FEELING ABNORMAL [None]
  - NERVOUSNESS [None]
  - POLLAKIURIA [None]
  - TREMOR [None]
